FAERS Safety Report 10378560 (Version 1)
Quarter: 2014Q3

REPORT INFORMATION
  Report Type: Spontaneous
  Country: US (occurrence: None)
  Receive Date: 20140804
  Receipt Date: 20140804
  Transmission Date: 20150326
  Serious: Yes (Death)
  Sender: FDA-Public Use
  Company Number: 1713747-2014-99915

PATIENT
  Age: 72 Year
  Sex: Male

DRUGS (17)
  1. OPTIFLUX [Concomitant]
  2. DIALYSIS MACHINE [Concomitant]
  3. OMEPRAZOLE. [Concomitant]
     Active Substance: OMEPRAZOLE
  4. ZOCOR [Concomitant]
     Active Substance: SIMVASTATIN
  5. VICODIN [Concomitant]
     Active Substance: ACETAMINOPHEN\HYDROCODONE BITARTRATE
  6. FLONASE [Concomitant]
     Active Substance: FLUTICASONE PROPIONATE
  7. SODIUM CHLORIDE. [Suspect]
     Active Substance: SODIUM CHLORIDE
     Indication: RENAL FAILURE CHRONIC
     Dosage: 3/WEEK, BRACHIOCHEPALIC
     Dates: start: 20110105, end: 20110610
  8. CUSTOM COMBISET [Concomitant]
  9. DIALYZER [Concomitant]
  10. COREG [Concomitant]
     Active Substance: CARVEDILOL
  11. RENAGEL [Concomitant]
     Active Substance: SEVELAMER HYDROCHLORIDE
  12. ALLOPURINIOL [Concomitant]
  13. GENTAMYCIN [Concomitant]
     Active Substance: GENTAMICIN
  14. LEVAQUIN [Concomitant]
     Active Substance: LEVOFLOXACIN
  15. ASPIRIN. [Concomitant]
     Active Substance: ASPIRIN
  16. PROSCAR [Concomitant]
     Active Substance: FINASTERIDE
  17. PAXIL [Concomitant]
     Active Substance: PAROXETINE HYDROCHLORIDE

REACTIONS (7)
  - Emotional distress [None]
  - Injury [None]
  - Anxiety [None]
  - Unresponsive to stimuli [None]
  - Cardiovascular disorder [None]
  - Pain [None]
  - Dialysis [None]

NARRATIVE: CASE EVENT DATE: 20110610
